FAERS Safety Report 22935497 (Version 4)
Quarter: 2023Q4

REPORT INFORMATION
  Report Type: Report from Study
  Country: BR (occurrence: BR)
  Receive Date: 20230912
  Receipt Date: 20231226
  Transmission Date: 20240110
  Serious: Yes (Hospitalization, Other)
  Sender: FDA-Public Use
  Company Number: BR-SANDOZ-SDZ2023BR026565

PATIENT
  Sex: Female

DRUGS (1)
  1. OMNITROPE [Suspect]
     Active Substance: SOMATROPIN
     Indication: Product used for unknown indication
     Dosage: 10MG, POSOLOGY 1.4 MG
     Route: 065

REACTIONS (4)
  - Ear infection [Not Recovered/Not Resolved]
  - Failure to thrive [Unknown]
  - Product dose omission issue [Unknown]
  - Intentional product use issue [Unknown]
